FAERS Safety Report 7772558-6 (Version None)
Quarter: 2011Q3

REPORT INFORMATION
  Report Type: 
  Country: None (occurrence: None)
  Receive Date: 20110922
  Receipt Date: 20110308
  Transmission Date: 20111222
  Serious: No
  Sender: FDA-Public Use
  Company Number: US-ASTRAZENECA-2011SE12990

PATIENT
  Age: 15024 Day
  Sex: Female

DRUGS (1)
  1. SEROQUEL XR [Suspect]
     Indication: BIPOLAR DISORDER
     Route: 048
     Dates: start: 20100701, end: 20110306

REACTIONS (7)
  - DIARRHOEA [None]
  - NAUSEA [None]
  - HYPERHIDROSIS [None]
  - INSOMNIA [None]
  - DRUG WITHDRAWAL SYNDROME [None]
  - TREMOR [None]
  - DRUG DOSE OMISSION [None]
